FAERS Safety Report 16107597 (Version 1)
Quarter: 2019Q1

REPORT INFORMATION
  Report Type: Spontaneous
  Country: IT (occurrence: IT)
  Receive Date: 20190322
  Receipt Date: 20190322
  Transmission Date: 20190418
  Serious: Yes (Other)
  Sender: FDA-Public Use
  Company Number: IT-TEVA-2019-IT-1026726

PATIENT
  Age: 51 Year
  Sex: Male

DRUGS (7)
  1. DIBASE [Concomitant]
     Active Substance: CHOLECALCIFEROL
  2. ENBREL [Suspect]
     Active Substance: ETANERCEPT
     Indication: RHEUMATOID ARTHRITIS
     Route: 058
     Dates: start: 20080901, end: 20190227
  3. LANSOPRAZOLE. [Concomitant]
     Active Substance: LANSOPRAZOLE
  4. FOLINA [Concomitant]
     Active Substance: FOLIC ACID
  5. ZYLORIC [Concomitant]
     Active Substance: ALLOPURINOL
  6. CARDIOASPIRIN [Concomitant]
     Active Substance: ASPIRIN
  7. METHOTREXATE. [Suspect]
     Active Substance: METHOTREXATE
     Indication: RHEUMATOID ARTHRITIS
     Route: 030
     Dates: start: 20000101, end: 20190227

REACTIONS (2)
  - Cardiac failure [Not Recovered/Not Resolved]
  - Ejection fraction decreased [Not Recovered/Not Resolved]

NARRATIVE: CASE EVENT DATE: 20190227
